FAERS Safety Report 8965586 (Version 1)
Quarter: 2012Q4

REPORT INFORMATION
  Report Type: Spontaneous
  Country: GB (occurrence: None)
  Receive Date: 20121205
  Receipt Date: 20121205
  Transmission Date: 20130627
  Serious: Yes (Life-Threatening, Hospitalization, Disabling, Other)
  Sender: FDA-Public Use
  Company Number: AUR-APL-2012-05042

PATIENT
  Age: 39 Year
  Sex: Male
  Weight: 82 kg

DRUGS (4)
  1. GABAPENTIN [Suspect]
     Indication: NECK PAIN
     Route: 048
     Dates: start: 20120531, end: 20121016
  2. AMITRIPTYLINE [Concomitant]
  3. LANSOPRAZOLE [Concomitant]
  4. NAPROXEN [Concomitant]

REACTIONS (1)
  - Cerebral artery occlusion [None]
